FAERS Safety Report 21213199 (Version 8)
Quarter: 2023Q2

REPORT INFORMATION
  Report Type: Spontaneous
  Country: US (occurrence: US)
  Receive Date: 20220815
  Receipt Date: 20230414
  Transmission Date: 20230722
  Serious: No
  Sender: FDA-Public Use
  Company Number: US-PFIZER INC-PV202200041989

PATIENT
  Age: 51 Year
  Sex: Female

DRUGS (1)
  1. EUCRISA [Suspect]
     Active Substance: CRISABOROLE
     Indication: Eczema
     Dosage: UNK, AS NEEDED, (APPLY TO AFFECTED AREAS ON BODY TWICE A DAY AS NEEDED)
     Route: 061

REACTIONS (2)
  - Off label use [Unknown]
  - Somnolence [Unknown]
